FAERS Safety Report 11650451 (Version 2)
Quarter: 2015Q4

REPORT INFORMATION
  Report Type: Spontaneous
  Country: FR (occurrence: FR)
  Receive Date: 20151021
  Receipt Date: 20151204
  Transmission Date: 20160304
  Serious: Yes (Hospitalization)
  Sender: FDA-Public Use
  Company Number: FR-ASTRAZENECA-2015SF00862

PATIENT
  Age: 25186 Day
  Sex: Female

DRUGS (3)
  1. METHOTREXATE [Interacting]
     Active Substance: METHOTREXATE
     Indication: CENTRAL NERVOUS SYSTEM LYMPHOMA
     Dosage: FIRST COURSE HALF DOSE ON 08-JUL-2015, THEN ENTIRE DOSE SINCE THE SECOND COURS TEVA (NON AZ PRODUCT)
     Route: 042
     Dates: start: 20150708
  2. INEXIUM [Suspect]
     Active Substance: ESOMEPRAZOLE
     Route: 048
     Dates: start: 20150922
  3. METHOTREXATE [Interacting]
     Active Substance: METHOTREXATE
     Indication: CENTRAL NERVOUS SYSTEM LYMPHOMA
     Dosage: 5.4 G, ONCE/SINGLE ADMINISTRATION, TEVA (NON AZ PRODUCT)
     Route: 042
     Dates: start: 20150922, end: 20150922

REACTIONS (5)
  - Cholestasis [Recovering/Resolving]
  - Drug interaction [Unknown]
  - Hepatocellular injury [Recovering/Resolving]
  - Acute kidney injury [Recovering/Resolving]
  - Overdose [Recovering/Resolving]

NARRATIVE: CASE EVENT DATE: 20150923
